FAERS Safety Report 12995959 (Version 1)
Quarter: 2016Q4

REPORT INFORMATION
  Report Type: Spontaneous
  Country: US (occurrence: US)
  Receive Date: 20161202
  Receipt Date: 20161202
  Transmission Date: 20170207
  Serious: Yes (Hospitalization)
  Sender: FDA-Public Use
  Company Number: US-LUNDBECK-DKLU2023288

PATIENT
  Age: 87 Year
  Sex: Male

DRUGS (2)
  1. NORTHERA [Suspect]
     Active Substance: DROXIDOPA
     Indication: PARKINSON^S DISEASE
     Dosage: SCHEDULE C TITRATION COMPLETE
     Route: 065
     Dates: start: 20160921
  2. NORTHERA [Suspect]
     Active Substance: DROXIDOPA
     Indication: ORTHOSTATIC HYPOTENSION
     Route: 065

REACTIONS (4)
  - Fall [Unknown]
  - Lower limb fracture [Unknown]
  - Abnormal dreams [Unknown]
  - Hallucination [Unknown]

NARRATIVE: CASE EVENT DATE: 20161013
